FAERS Safety Report 6752758-4 (Version None)
Quarter: 2010Q2

REPORT INFORMATION
  Report Type: 
  Country: None (occurrence: None)
  Receive Date: 20100528
  Receipt Date: 20100518
  Transmission Date: 20101027
  Serious: Yes (Hospitalization, Disabling)
  Sender: FDA-Public Use
  Company Number: 1000014090

PATIENT
  Age: 58 Year
  Sex: Female

DRUGS (2)
  1. ESCITALOPRAM [Suspect]
     Indication: DEPRESSION
     Dosage: ORAL
     Route: 048
  2. PANDEMRIX [Suspect]
     Indication: IMMUNISATION
     Dosage: (1 DOSAGE FORMS, ONCE), INTRAMUSCULAR
     Route: 030
     Dates: start: 20091117, end: 20091117

REACTIONS (6)
  - ASTHENIA [None]
  - CHEST PAIN [None]
  - DIPLOPIA [None]
  - GAZE PALSY [None]
  - MUSCULOSKELETAL STIFFNESS [None]
  - TOLOSA-HUNT SYNDROME [None]
